FAERS Safety Report 4635582-8 (Version None)
Quarter: 2005Q2

REPORT INFORMATION
  Report Type: 
  Country: None (occurrence: None)
  Receive Date: 20050414
  Receipt Date: 20050411
  Transmission Date: 20051028
  Serious: Yes (Death, Hospitalization)
  Sender: FDA-Public Use
  Company Number: US-MERCK-0504USA01538

PATIENT
  Age: 61 Year
  Sex: Female

DRUGS (4)
  1. VIOXX [Suspect]
     Indication: SCIATICA
     Route: 048
     Dates: start: 20030201
  2. IBUPROFEN [Concomitant]
     Route: 048
  3. IBUPROFEN [Concomitant]
     Route: 048
     Dates: start: 20030101
  4. ALEVE [Concomitant]
     Route: 048
     Dates: start: 20021101

REACTIONS (4)
  - DIABETES MELLITUS [None]
  - HAEMORRHAGIC STROKE [None]
  - HYPERTENSION [None]
  - SELF-MEDICATION [None]
